FAERS Safety Report 26187672 (Version 1)
Quarter: 2025Q4

REPORT INFORMATION
  Report Type: Spontaneous
  Country: US (occurrence: US)
  Receive Date: 20251222
  Receipt Date: 20251222
  Transmission Date: 20260117
  Serious: No
  Sender: NEUROCRINE BIOSCIENCES
  Company Number: US-NBI-NBI-US-6355-2025

PATIENT
  Sex: Female

DRUGS (2)
  1. CRENESSITY [Suspect]
     Active Substance: CRINECERFONT
     Indication: Adrenogenital syndrome
     Dosage: 100 MILLIGRAM, BID
     Route: 065
  2. CRENESSITY [Suspect]
     Active Substance: CRINECERFONT
     Dosage: 100 MILLIGRAM, QD
     Route: 065

REACTIONS (2)
  - Weight increased [Recovered/Resolved]
  - Dizziness [Recovered/Resolved]
